FAERS Safety Report 15141254 (Version 2)
Quarter: 2018Q3

REPORT INFORMATION
  Report Type: Spontaneous
  Country: DE (occurrence: DE)
  Receive Date: 20180713
  Receipt Date: 20180831
  Transmission Date: 20181010
  Serious: Yes (Hospitalization, Other)
  Sender: FDA-Public Use
  Company Number: DE-AUROBINDO-AUR-APL-2017-08437

PATIENT
  Age: 60 Year
  Sex: Male
  Weight: 80 kg

DRUGS (11)
  1. RAMIPRIL. [Interacting]
     Active Substance: RAMIPRIL
     Dosage: 2.5 MILLIGRAM, ONCE A DAY
     Route: 048
     Dates: start: 20100729
  2. QUILONUM RETARD [Suspect]
     Active Substance: LITHIUM CARBONATE
     Indication: SCHIZOAFFECTIVE DISORDER
  3. RAMIPRIL. [Interacting]
     Active Substance: RAMIPRIL
     Dosage: 6 MILLIGRAM, ONCE A DAY
     Route: 065
  4. LITHIUM. [Interacting]
     Active Substance: LITHIUM
     Dosage: 450 MILLIGRAM, ONCE A DAY
     Route: 048
     Dates: start: 2008, end: 20100718
  5. METFORMIN [Concomitant]
     Active Substance: METFORMIN HYDROCHLORIDE
     Indication: TYPE 2 DIABETES MELLITUS
     Dosage: 1500 MILLIGRAM, ONCE A DAY (500 MG, TID)
     Route: 048
     Dates: start: 2006, end: 20100718
  6. RAMIPRIL. [Suspect]
     Active Substance: RAMIPRIL
     Indication: HYPERTENSION
     Dosage: 2.5 MG, BID
     Route: 048
     Dates: start: 2005, end: 20100722
  7. LITHIUM. [Interacting]
     Active Substance: LITHIUM
     Indication: SCHIZOAFFECTIVE DISORDER
     Dosage: 295 MILLIGRAM, ONCE A DAY
     Route: 048
     Dates: start: 2008, end: 20100718
  8. BELOC?ZOC COMP [Interacting]
     Active Substance: HYDROCHLOROTHIAZIDE\METOPROLOL SUCCINATE
     Indication: HYPERTENSION
     Dosage: 47.5MG UNKNOWN INTERVAL
     Route: 048
     Dates: start: 2005
  9. BELOC?ZOC COMP [Interacting]
     Active Substance: HYDROCHLOROTHIAZIDE\METOPROLOL SUCCINATE
     Dosage: 48 MILLIGRAM, ONCE A DAY
     Route: 065
  10. QUILONUM RETARD [Suspect]
     Active Substance: LITHIUM CARBONATE
     Indication: PRODUCT USED FOR UNKNOWN INDICATION
     Dosage: 450 MILLIGRAM, ONCE A DAY
     Route: 048
     Dates: start: 2008, end: 20100718
  11. ULTRAVIST [Interacting]
     Active Substance: IOPROMIDE
     Indication: ANGIOGRAM
     Dosage: 250 ML, ONCE/SINGLE ; IN TOTAL
     Route: 042
     Dates: start: 20100713, end: 20100713

REACTIONS (4)
  - Balance disorder [Unknown]
  - Acute kidney injury [Recovered/Resolved]
  - Drug interaction [Recovered/Resolved]
  - Blood creatine increased [Recovered/Resolved]

NARRATIVE: CASE EVENT DATE: 201007
